FAERS Safety Report 13925293 (Version 2)
Quarter: 2017Q4

REPORT INFORMATION
  Report Type: Report from Study
  Country: CA (occurrence: CA)
  Receive Date: 20170831
  Receipt Date: 20171003
  Transmission Date: 20180320
  Serious: Yes (Other)
  Sender: FDA-Public Use
  Company Number: CA-AMGEN-CANSL2017115580

PATIENT
  Age: 48 Year
  Sex: Female

DRUGS (3)
  1. OTEZLA [Concomitant]
     Active Substance: APREMILAST
     Dosage: UNK
  2. ENBREL [Suspect]
     Active Substance: ETANERCEPT
     Indication: PSORIATIC ARTHROPATHY
  3. ENBREL [Suspect]
     Active Substance: ETANERCEPT
     Indication: PSORIASIS
     Dosage: 50 MG, Q 10 DAYS
     Route: 058
     Dates: start: 20071120, end: 20161130

REACTIONS (7)
  - Renal impairment [Unknown]
  - Antinuclear antibody positive [Unknown]
  - Off label use [Unknown]
  - Urinary tract infection enterococcal [Unknown]
  - Mean cell haemoglobin concentration increased [Unknown]
  - Systemic lupus erythematosus [Recovered/Resolved]
  - Psoriasis [Unknown]

NARRATIVE: CASE EVENT DATE: 20071120
